FAERS Safety Report 4270531-6 (Version None)
Quarter: 2004Q1

REPORT INFORMATION
  Report Type: 
  Country: None (occurrence: None)
  Receive Date: 20040114
  Receipt Date: 20040106
  Transmission Date: 20041129
  Serious: Yes (Other)
  Sender: FDA-Public Use
  Company Number: GB-GLAXOSMITHKLINE-B0319124A

PATIENT
  Age: 74 Year
  Sex: Male

DRUGS (3)
  1. AVODART [Suspect]
     Dosage: 500MCG PER DAY
     Route: 048
     Dates: start: 20031105, end: 20031119
  2. ALFUZOSIN [Concomitant]
     Indication: PROSTATISM
     Dosage: 2.5MG PER DAY
     Route: 048
     Dates: start: 19970101
  3. MOMETASONE [Concomitant]
     Dates: start: 20000101

REACTIONS (1)
  - ATRIAL FIBRILLATION [None]
